FAERS Safety Report 6551469-8 (Version None)
Quarter: 2010Q1

REPORT INFORMATION
  Report Type: 
  Country: None (occurrence: None)
  Receive Date: 20100122
  Receipt Date: 20091021
  Transmission Date: 20100710
  Serious: No
  Sender: FDA-Public Use
  Company Number: 2009-00681

PATIENT
  Age: 20 Year
  Sex: Male
  Weight: 63.5036 kg

DRUGS (1)
  1. ALLERGY RELIEF GEL SWABS [Suspect]
     Dosage: QID - 3 DAYS
     Dates: start: 20091018, end: 20091021

REACTIONS (1)
  - AGEUSIA [None]
